FAERS Safety Report 13763483 (Version 5)
Quarter: 2018Q2

REPORT INFORMATION
  Report Type: Report from Study
  Country: US (occurrence: US)
  Receive Date: 20170718
  Receipt Date: 20180430
  Transmission Date: 20180711
  Serious: Yes (Hospitalization)
  Sender: FDA-Public Use
  Company Number: US-JNJFOC-20161214178

PATIENT
  Age: 77 Year
  Sex: Male

DRUGS (22)
  1. LEVEMIR [Concomitant]
     Active Substance: INSULIN DETEMIR
  2. TOPROL XL [Concomitant]
     Active Substance: METOPROLOL SUCCINATE
  3. VITAMIN D3 [Concomitant]
     Active Substance: CHOLECALCIFEROL
  4. NITROSTAT [Concomitant]
     Active Substance: NITROGLYCERIN
  5. LIPITOR [Concomitant]
     Active Substance: ATORVASTATIN CALCIUM
  6. VITAMIN B [Concomitant]
     Active Substance: VITAMIN B
  7. IMBRUVICA [Suspect]
     Active Substance: IBRUTINIB
     Indication: CHRONIC LYMPHOCYTIC LEUKAEMIA RECURRENT
     Route: 048
     Dates: start: 20171116
  8. IMBRUVICA [Suspect]
     Active Substance: IBRUTINIB
     Indication: CHRONIC LYMPHOCYTIC LEUKAEMIA RECURRENT
     Route: 048
     Dates: start: 20170314, end: 2017
  9. VITAMIN B12 [Concomitant]
     Active Substance: CYANOCOBALAMIN
  10. IMBRUVICA [Suspect]
     Active Substance: IBRUTINIB
     Indication: CHRONIC LYMPHOCYTIC LEUKAEMIA RECURRENT
     Route: 048
     Dates: start: 20161207, end: 201701
  11. LOSARTAN POTASSIUM. [Concomitant]
     Active Substance: LOSARTAN POTASSIUM
  12. LYRICA [Concomitant]
     Active Substance: PREGABALIN
  13. IMBRUVICA [Suspect]
     Active Substance: IBRUTINIB
     Indication: CHRONIC LYMPHOCYTIC LEUKAEMIA RECURRENT
     Route: 048
     Dates: start: 20170110
  14. IMBRUVICA [Suspect]
     Active Substance: IBRUTINIB
     Indication: CHRONIC LYMPHOCYTIC LEUKAEMIA RECURRENT
     Route: 048
     Dates: start: 2017
  15. VITAMIN C [Concomitant]
     Active Substance: ASCORBIC ACID
  16. DOXEPIN [Concomitant]
     Active Substance: DOXEPIN
  17. PREDNISONE. [Concomitant]
     Active Substance: PREDNISONE
  18. NIACIN. [Concomitant]
     Active Substance: NIACIN
  19. VITAMIN D [Concomitant]
     Active Substance: CHOLECALCIFEROL
  20. DILTIAZEM. [Concomitant]
     Active Substance: DILTIAZEM
  21. IMBRUVICA [Suspect]
     Active Substance: IBRUTINIB
     Indication: CHRONIC LYMPHOCYTIC LEUKAEMIA RECURRENT
     Route: 048
  22. NOVOLOG [Concomitant]
     Active Substance: INSULIN ASPART

REACTIONS (19)
  - Blood glucose fluctuation [Unknown]
  - Blood glucose decreased [Unknown]
  - Nasal congestion [Unknown]
  - Gastroenteritis [Unknown]
  - Fatigue [Unknown]
  - Anxiety [Unknown]
  - Influenza [Recovered/Resolved]
  - Insomnia [Unknown]
  - Vomiting [Unknown]
  - Suffocation feeling [Unknown]
  - Nausea [Unknown]
  - Rash [Unknown]
  - Dehydration [Unknown]
  - Wound drainage [Unknown]
  - Incorrect dose administered [Unknown]
  - Off label use [Unknown]
  - Immunodeficiency [Unknown]
  - Impaired healing [Unknown]
  - Diarrhoea [Not Recovered/Not Resolved]

NARRATIVE: CASE EVENT DATE: 20161213
